FAERS Safety Report 4362732-3 (Version None)
Quarter: 2004Q2

REPORT INFORMATION
  Report Type: 
  Country: None (occurrence: None)
  Receive Date: 20040524
  Receipt Date: 20040512
  Transmission Date: 20050107
  Serious: Yes (Other)
  Sender: FDA-Public Use
  Company Number: 200415061GDDC

PATIENT
  Age: 49 Year
  Sex: Female
  Weight: 37.8 kg

DRUGS (5)
  1. ARAVA [Suspect]
     Indication: RHEUMATOID ARTHRITIS
     Route: 048
     Dates: start: 20030101, end: 20040421
  2. METHOTREXATE [Concomitant]
     Dosage: DOSE: UNK
  3. PREDNISONE [Concomitant]
     Dosage: DOSE: UNK
  4. ACETAMINOPHEN [Concomitant]
     Dosage: DOSE: UNK
  5. CALCIUM [Concomitant]
     Dosage: DOSE: UNK

REACTIONS (3)
  - ANGIOPATHY [None]
  - HAEMATURIA [None]
  - HEADACHE [None]
